FAERS Safety Report 8412758-5 (Version None)
Quarter: 2012Q2

REPORT INFORMATION
  Report Type: 
  Country: None (occurrence: None)
  Receive Date: 20120605
  Receipt Date: 20120523
  Transmission Date: 20120825
  Serious: No
  Sender: FDA-Public Use
  Company Number: US-AMGEN-USASP2012026868

PATIENT
  Age: 47 Year
  Sex: Female

DRUGS (1)
  1. ENBREL [Suspect]
     Indication: RHEUMATOID ARTHRITIS
     Dosage: 50 MG ONCE IN TWO WEEKS
     Dates: start: 20100413, end: 20111001

REACTIONS (14)
  - TONSILLECTOMY [None]
  - CLOSTRIDIAL INFECTION [None]
  - HEADACHE [None]
  - PHARYNGITIS [None]
  - GASTROENTERITIS NOROVIRUS [None]
  - MALAISE [None]
  - SINUS CONGESTION [None]
  - VOMITING [None]
  - URINARY TRACT INFECTION STAPHYLOCOCCAL [None]
  - FEELING ABNORMAL [None]
  - NAUSEA [None]
  - SINUSITIS [None]
  - FATIGUE [None]
  - PARANASAL SINUS HYPERSECRETION [None]
